FAERS Safety Report 25559859 (Version 1)
Quarter: 2025Q3

REPORT INFORMATION
  Report Type: Spontaneous
  Country: US (occurrence: US)
  Receive Date: 20250715
  Receipt Date: 20250715
  Transmission Date: 20251021
  Serious: No
  Sender: NOVO NORDISK
  Company Number: US-NOVOPROD-1421321

PATIENT
  Sex: Female

DRUGS (1)
  1. OZEMPIC [Suspect]
     Active Substance: SEMAGLUTIDE
     Indication: Glycosylated haemoglobin increased

REACTIONS (3)
  - Unevaluable event [Not Recovered/Not Resolved]
  - Drug dose titration not performed [Not Recovered/Not Resolved]
  - Inappropriate schedule of product discontinuation [Not Recovered/Not Resolved]
